FAERS Safety Report 15955883 (Version 4)
Quarter: 2022Q1

REPORT INFORMATION
  Report Type: Spontaneous
  Country: US (occurrence: US)
  Receive Date: 20190213
  Receipt Date: 20220308
  Transmission Date: 20220423
  Serious: Yes (Life-Threatening, Hospitalization)
  Sender: FDA-Public Use
  Company Number: US-ELI_LILLY_AND_COMPANY-US201902002827

PATIENT
  Age: 67 Year
  Sex: Male
  Weight: 80.3 kg

DRUGS (9)
  1. ZYPREXA [Suspect]
     Active Substance: OLANZAPINE
     Indication: Affective disorder
     Dosage: 5 MG, DAILY (AT BED TIME)
     Route: 048
     Dates: start: 20181031, end: 20181115
  2. ZYPREXA [Suspect]
     Active Substance: OLANZAPINE
     Indication: Sleep disorder
  3. METOPROLOL [Concomitant]
     Active Substance: METOPROLOL
     Indication: Blood pressure measurement
     Dosage: UNK UNK, UNKNOWN
     Route: 065
  4. NICOTINE [Concomitant]
     Active Substance: NICOTINE
     Indication: Nicotine dependence
     Dosage: 14 MG, DAILY, 1 PATCH
     Route: 065
     Dates: start: 20181126
  5. NICOTINE POLACRILEX [Concomitant]
     Active Substance: NICOTINE
     Indication: Nicotine dependence
     Dosage: 2 MG, OTHER, EVERY 6 HOURS
     Route: 048
     Dates: start: 20181126
  6. MILK OF MAGNESIA [Concomitant]
     Active Substance: MAGNESIUM HYDROXIDE
     Indication: Constipation
     Dosage: 30 ML, OTHER, AT BEDTIME
     Route: 048
  7. GABAPENTIN [Concomitant]
     Active Substance: GABAPENTIN
     Indication: Anxiety
     Dosage: 100 MG, 2 CAPSULES DAILY AND 4 CAPSULES AT BEDTIME
     Route: 048
     Dates: start: 20170821
  8. GABAPENTIN [Concomitant]
     Active Substance: GABAPENTIN
     Indication: Alcoholism
     Dosage: 200 MG, DAILY
     Route: 048
  9. GABAPENTIN [Concomitant]
     Active Substance: GABAPENTIN
     Indication: Anxiolytic therapy
     Dosage: 600 MG, QHS
     Route: 048
     Dates: start: 20181120

REACTIONS (9)
  - Major depression [Recovered/Resolved]
  - Suicidal ideation [Recovered/Resolved]
  - Homicidal ideation [Recovered/Resolved]
  - Irritability [Unknown]
  - Panic attack [Unknown]
  - Nightmare [Unknown]
  - Anger [Unknown]
  - Insomnia [Unknown]
  - Asthenia [Unknown]

NARRATIVE: CASE EVENT DATE: 20181101
